FAERS Safety Report 21735483 (Version 3)
Quarter: 2023Q2

REPORT INFORMATION
  Report Type: Spontaneous
  Country: US (occurrence: US)
  Receive Date: 20221215
  Receipt Date: 20230406
  Transmission Date: 20230722
  Serious: Yes (Hospitalization)
  Sender: FDA-Public Use
  Company Number: US-CARA THERAPEUTICS, INC.-2022-00168-US

PATIENT
  Sex: Male

DRUGS (1)
  1. KORSUVA [Suspect]
     Active Substance: DIFELIKEFALIN ACETATE
     Indication: Pruritus

REACTIONS (3)
  - Asthenia [Unknown]
  - Lethargy [Unknown]
  - Gait disturbance [Unknown]
